FAERS Safety Report 20751202 (Version 2)
Quarter: 2022Q2

REPORT INFORMATION
  Report Type: Spontaneous
  Country: AR (occurrence: AR)
  Receive Date: 20220426
  Receipt Date: 20220523
  Transmission Date: 20220721
  Serious: Yes (Hospitalization)
  Sender: FDA-Public Use
  Company Number: AR-SA-SAC20220421000856

PATIENT
  Age: 33 Year
  Sex: Female

DRUGS (2)
  1. LARONIDASE [Suspect]
     Active Substance: LARONIDASE
     Indication: Mucopolysaccharidosis I
     Dosage: 9 VIALS, QW
     Route: 041
  2. LARONIDASE [Suspect]
     Active Substance: LARONIDASE
     Dosage: 18 DF, QW (18 VIALS)
     Route: 041

REACTIONS (3)
  - Caesarean section [Unknown]
  - Dehydration [Not Recovered/Not Resolved]
  - Exposure during pregnancy [Unknown]

NARRATIVE: CASE EVENT DATE: 20210101
